FAERS Safety Report 9887432 (Version 1)
Quarter: 2014Q1

REPORT INFORMATION
  Report Type: Spontaneous
  Country: AM (occurrence: AM)
  Receive Date: 20140211
  Receipt Date: 20140211
  Transmission Date: 20141002
  Serious: Yes (Other)
  Sender: FDA-Public Use
  Company Number: AM-ROCHE-1347050

PATIENT
  Age: 52 Year
  Sex: Female

DRUGS (3)
  1. PEGASYS [Suspect]
     Indication: HEPATITIS C
     Route: 058
     Dates: end: 20110722
  2. PROPRANOLOL [Concomitant]
     Route: 065
  3. PANTOPRAZOL [Concomitant]
     Route: 065

REACTIONS (3)
  - Pancytopenia [Recovered/Resolved]
  - Weight decreased [Recovered/Resolved]
  - Irritability [Recovered/Resolved]
